FAERS Safety Report 4283160-5 (Version None)
Quarter: 2004Q1

REPORT INFORMATION
  Report Type: 
  Country: None (occurrence: None)
  Receive Date: 20040121
  Receipt Date: 20040113
  Transmission Date: 20041129
  Serious: Yes (Death, Other)
  Sender: FDA-Public Use
  Company Number: IGH/03/08/LIT

PATIENT
  Age: 91 Year
  Sex: Male

DRUGS (2)
  1. IMMUNE GLOBULIN INTRAVENOUS (HUMAN) [Suspect]
     Indication: IMMUNODEFICIENCY
     Dosage: I.V. INF.
     Route: 042
  2. IMMUNE GLOBULIN INTRAVENOUS (HUMAN) [Suspect]
     Indication: IMMUNODEFICIENCY
     Dosage: I.V.
     Route: 042

REACTIONS (10)
  - CEREBROVASCULAR ACCIDENT [None]
  - DISORIENTATION [None]
  - DYSARTHRIA [None]
  - GAIT DISTURBANCE [None]
  - HEMIANOPIA [None]
  - HEMIPARESIS [None]
  - INFUSION RELATED REACTION [None]
  - MEDICATION ERROR [None]
  - PHARMACEUTICAL PRODUCT COMPLAINT [None]
  - RESPIRATORY FAILURE [None]
